FAERS Safety Report 10172401 (Version 1)
Quarter: 2014Q2

REPORT INFORMATION
  Report Type: Spontaneous
  Country: US (occurrence: US)
  Receive Date: 20140515
  Receipt Date: 20140515
  Transmission Date: 20141212
  Serious: Yes (Other)
  Sender: FDA-Public Use
  Company Number: US-ASTRAZENECA-2014SE31550

PATIENT
  Age: 74 Year
  Sex: Male

DRUGS (6)
  1. BRILINTA [Suspect]
     Indication: MYOCARDIAL INFARCTION
     Route: 048
  2. BRILINTA [Suspect]
     Indication: STENT PLACEMENT
     Route: 048
  3. METOPROLOL [Suspect]
     Route: 048
  4. ASPRIN [Concomitant]
  5. PRAVACHOL [Concomitant]
  6. LOSARTAN [Concomitant]

REACTIONS (1)
  - Thrombosis in device [Unknown]
